FAERS Safety Report 16241416 (Version 2)
Quarter: 2020Q2

REPORT INFORMATION
  Report Type: Spontaneous
  Country: ES (occurrence: ES)
  Receive Date: 20190426
  Receipt Date: 20200620
  Transmission Date: 20200713
  Serious: Yes (Hospitalization, Other)
  Sender: FDA-Public Use
  Company Number: ES-AUROBINDO-AUR-APL-2019-022685

PATIENT
  Age: 63 Year
  Sex: Male

DRUGS (13)
  1. OMEPRAZOLE. [Suspect]
     Active Substance: OMEPRAZOLE
     Indication: PRODUCT USED FOR UNKNOWN INDICATION
     Dosage: 20 MILLIGRAM, DAILY
     Route: 065
  2. FERRO SANOL [Suspect]
     Active Substance: FERROUS GLYCINE SULFATE
     Indication: ANAEMIA
     Dosage: 100 MILLIGRAM, ONCE A DAY
     Route: 065
  3. ATORVASTATIN [Suspect]
     Active Substance: ATORVASTATIN
     Indication: PRODUCT USED FOR UNKNOWN INDICATION
     Dosage: 80 MILLIGRAM, DAILY
     Route: 065
  4. METFORMIN [Suspect]
     Active Substance: METFORMIN HYDROCHLORIDE
     Indication: PRODUCT USED FOR UNKNOWN INDICATION
     Dosage: 850 MILLIGRAM, TWO TIMES A DAY
     Route: 065
  5. IVABRADINE [Suspect]
     Active Substance: IVABRADINE
     Dosage: 100 MILLIGRAM, ONCE A DAY
     Route: 065
  6. IRBESARTAN AND HYDROCHLOROTHIAZIDE [Suspect]
     Active Substance: HYDROCHLOROTHIAZIDE\IRBESARTAN
     Indication: PRODUCT USED FOR UNKNOWN INDICATION
     Dosage: UNK 125/25 MG/DAY
     Route: 065
  7. CLOPIDOGREL [Suspect]
     Active Substance: CLOPIDOGREL BISULFATE
     Indication: PRODUCT USED FOR UNKNOWN INDICATION
     Dosage: 75 MILLIGRAM, DAILY
     Route: 065
  8. NITROGLYCERIN. [Suspect]
     Active Substance: NITROGLYCERIN
     Indication: PRODUCT USED FOR UNKNOWN INDICATION
     Dosage: 15 MILLIGRAM, DAILY
     Route: 065
  9. FERROGLYCINE SULFATE COMPLEX [Suspect]
     Active Substance: FERROGLYCINE SULFATE
     Indication: PRODUCT USED FOR UNKNOWN INDICATION
     Dosage: 100 MILLIGRAM, DAILY
     Route: 065
  10. ACENOCOUMAROL [Suspect]
     Active Substance: ACENOCOUMAROL
     Indication: PRODUCT USED FOR UNKNOWN INDICATION
     Dosage: UNK
     Route: 065
  11. ERYTHROPOETIN [Suspect]
     Active Substance: ERYTHROPOIETIN
     Indication: PRODUCT USED FOR UNKNOWN INDICATION
     Dosage: UNK, BI-MONTHLY
     Route: 065
  12. AMLODIPINE [Suspect]
     Active Substance: AMLODIPINE BESYLATE
     Indication: PRODUCT USED FOR UNKNOWN INDICATION
     Dosage: 5 MILLIGRAM, DAILY
     Route: 065
  13. IVABRADINE [Suspect]
     Active Substance: IVABRADINE
     Indication: PRODUCT USED FOR UNKNOWN INDICATION
     Dosage: 10 MILLIGRAM, DAILY
     Route: 065

REACTIONS (1)
  - Angina pectoris [Recovering/Resolving]

NARRATIVE: CASE EVENT DATE: 2019
